FAERS Safety Report 22353275 (Version 1)
Quarter: 2023Q2

REPORT INFORMATION
  Report Type: Report from Study
  Country: US (occurrence: US)
  Receive Date: 20230523
  Receipt Date: 20230523
  Transmission Date: 20230721
  Serious: Yes (Other)
  Sender: FDA-Public Use
  Company Number: US-JNJFOC-20230542322

PATIENT
  Age: 86 Year
  Sex: Male
  Weight: 58.112 kg

DRUGS (3)
  1. APALUTAMIDE [Suspect]
     Active Substance: APALUTAMIDE
     Indication: Prostate cancer
     Route: 048
  2. TRAZODONE [Concomitant]
     Active Substance: TRAZODONE HYDROCHLORIDE
     Indication: Product used for unknown indication
  3. DITROPAN XL [Concomitant]
     Active Substance: OXYBUTYNIN CHLORIDE
     Indication: Product used for unknown indication

REACTIONS (7)
  - Hallucination [Not Recovered/Not Resolved]
  - Somnolence [Not Recovered/Not Resolved]
  - Disorientation [Not Recovered/Not Resolved]
  - Aggression [Not Recovered/Not Resolved]
  - Pain [Not Recovered/Not Resolved]
  - Hypersomnia [Unknown]
  - Decreased appetite [Not Recovered/Not Resolved]
